FAERS Safety Report 5553791-0 (Version None)
Quarter: 2007Q4

REPORT INFORMATION
  Report Type: 
  Country: None (occurrence: None)
  Receive Date: 20071212
  Receipt Date: 20071212
  Transmission Date: 20080405
  Serious: Yes (Other)
  Sender: FDA-Public Use
  Company Number: None

PATIENT
  Age: 25 Year
  Sex: Female
  Weight: 72.5755 kg

DRUGS (4)
  1. KENALOG [Suspect]
     Indication: HYPERSENSITIVITY
     Dosage: IM ONCE IM
     Route: 030
     Dates: start: 20060621
  2. LANTUS [Concomitant]
  3. NOVOLOG INSULINS [Concomitant]
  4. SYMLIN [Concomitant]

REACTIONS (1)
  - NO ADVERSE DRUG REACTION [None]
